FAERS Safety Report 16006778 (Version 1)
Quarter: 2019Q1

REPORT INFORMATION
  Report Type: Report from Study
  Country: US (occurrence: US)
  Receive Date: 20190226
  Receipt Date: 20190226
  Transmission Date: 20190418
  Serious: Yes (Hospitalization, Other)
  Sender: FDA-Public Use
  Company Number: US-SA-2016SA132765

PATIENT
  Age: 46 Year
  Sex: Male

DRUGS (4)
  1. TOUJEO [Concomitant]
     Active Substance: INSULIN GLARGINE
     Indication: TYPE 1 DIABETES MELLITUS
     Dosage: 38 DF,QD
  2. INSULIN GLARGINE [Suspect]
     Active Substance: INSULIN GLARGINE
     Dosage: 35 U, QD
     Route: 058
  3. APIDRA [Suspect]
     Active Substance: INSULIN GLULISINE
     Indication: TYPE 1 DIABETES MELLITUS
     Dosage: UNK UNK,UNK
     Route: 065
  4. INSULIN GLARGINE [Suspect]
     Active Substance: INSULIN GLARGINE
     Indication: TYPE 1 DIABETES MELLITUS
     Dosage: 38 U, QD
     Route: 065

REACTIONS (16)
  - Muscle strain [Recovered/Resolved]
  - Tooth extraction [Unknown]
  - Dyspnoea [Recovered/Resolved]
  - Gastric haemorrhage [Recovered/Resolved]
  - Feeling abnormal [Recovered/Resolved]
  - Pain in extremity [Not Recovered/Not Resolved]
  - Product dose omission [Unknown]
  - Blindness [Not Recovered/Not Resolved]
  - Gingivitis [Unknown]
  - Cough [Recovered/Resolved]
  - Sneezing [Recovered/Resolved]
  - Pneumonia [Recovered/Resolved]
  - Cardiac disorder [Unknown]
  - Ankle fracture [Not Recovered/Not Resolved]
  - Cardiac infection [Unknown]
  - Fall [Unknown]

NARRATIVE: CASE EVENT DATE: 2013
